FAERS Safety Report 9485233 (Version 2)
Quarter: 2013Q4

REPORT INFORMATION
  Report Type: Spontaneous
  Country: US (occurrence: US)
  Receive Date: 20130828
  Receipt Date: 20131022
  Transmission Date: 20140711
  Serious: No
  Sender: FDA-Public Use
  Company Number: US-009507513-1308USA012151

PATIENT
  Age: 51 Year
  Sex: Male
  Weight: 71.66 kg

DRUGS (3)
  1. PEGINTRON [Suspect]
     Indication: HEPATITIS C
     Dosage: 150 MCG/0.5ML, QW REDIPEN
     Route: 058
     Dates: start: 20130718, end: 20130815
  2. RIBAPAK [Suspect]
     Indication: HEPATITIS C
     Dosage: 1200 MG, QD
     Route: 048
     Dates: start: 20130718, end: 20130815
  3. VITAMIN B COMPLEX [Concomitant]
     Route: 048

REACTIONS (3)
  - Pain [Unknown]
  - Headache [Unknown]
  - White blood cell count decreased [Unknown]
